FAERS Safety Report 24402557 (Version 1)
Quarter: 2024Q4

REPORT INFORMATION
  Report Type: Spontaneous
  Country: US (occurrence: US)
  Receive Date: 20241007
  Receipt Date: 20241007
  Transmission Date: 20250115
  Serious: No
  Sender: HETERO
  Company Number: US-HETERO-HET2024US03508

PATIENT
  Sex: Female
  Weight: 57.596 kg

DRUGS (1)
  1. LISINOPRIL [Suspect]
     Active Substance: LISINOPRIL
     Indication: Hypertension
     Dosage: 40 MILLIGRAMS, QD (ONCE A DAY)
     Route: 048

REACTIONS (1)
  - Alopecia [Not Recovered/Not Resolved]
